FAERS Safety Report 6814866-9 (Version None)
Quarter: 2010Q3

REPORT INFORMATION
  Report Type: 
  Country: None (occurrence: None)
  Receive Date: 20100702
  Receipt Date: 20100614
  Transmission Date: 20110219
  Serious: Yes (Other)
  Sender: FDA-Public Use
  Company Number: B0663363A

PATIENT
  Age: 65 Year
  Sex: Male

DRUGS (8)
  1. CARVEDILOL [Suspect]
     Indication: ACUTE MYOCARDIAL INFARCTION
     Dosage: 5MG PER DAY
     Route: 048
  2. EPINEPHRINE [Suspect]
     Route: 065
  3. ASPIRIN [Concomitant]
     Route: 065
  4. ENALAPRIL MALEATE [Concomitant]
     Route: 065
  5. TICLOPIDINE HCL [Concomitant]
     Route: 065
  6. WARFARIN SODIUM [Concomitant]
     Route: 065
  7. ATORVASTATIN [Concomitant]
     Route: 065
  8. ATROPINE [Concomitant]
     Route: 065

REACTIONS (2)
  - CARDIO-RESPIRATORY ARREST [None]
  - DRUG RESISTANCE [None]
